FAERS Safety Report 5313748-1 (Version None)
Quarter: 2007Q2

REPORT INFORMATION
  Report Type: 
  Country: None (occurrence: None)
  Receive Date: 20070426
  Receipt Date: 20070413
  Transmission Date: 20071010
  Serious: Yes (Hospitalization)
  Sender: FDA-Public Use
  Company Number: TPG2007A00326

PATIENT
  Age: 70 Year
  Sex: Female

DRUGS (4)
  1. COMPETACT (PIOGLITAZONE HYDROCHLORIDE, METFORMIN HYDROCHLORIDE) [Suspect]
     Indication: DIABETES MELLITUS NON-INSULIN-DEPENDENT
     Dosage: PIOGLITAZONE 15 MG; 850 MG METFORMIN PER ORAL
     Route: 048
     Dates: start: 20070111
  2. ENABETA COMP (ENALAPRIL MALEATE) [Concomitant]
  3. SIMVASTATIN [Concomitant]
  4. LEVOTHYROXINE SODIUM [Concomitant]

REACTIONS (2)
  - ARTERIAL THROMBOSIS LIMB [None]
  - PULMONARY EMBOLISM [None]
